FAERS Safety Report 4668311-2 (Version None)
Quarter: 2005Q2

REPORT INFORMATION
  Report Type: 
  Country: None (occurrence: None)
  Receive Date: 20050519
  Receipt Date: 20050506
  Transmission Date: 20051028
  Serious: Yes (Hospitalization)
  Sender: FDA-Public Use
  Company Number: 2005071459

PATIENT
  Age: 51 Year
  Sex: Female
  Weight: 90.7194 kg

DRUGS (11)
  1. BEXTRA [Suspect]
     Indication: PAIN
     Dosage: 20 MG (20 MG, 1 IN 1 D), ORAL
     Route: 048
     Dates: start: 20040213, end: 20040901
  2. BENICAR HCT [Concomitant]
  3. GLUCOPHAGE [Concomitant]
  4. ULTRAM [Concomitant]
  5. BENTYL [Concomitant]
  6. DARVOCET (DEXTROPROPOXYPHENE NAPSILATE, PARACETAMOL) [Concomitant]
  7. ZYRTEC [Concomitant]
  8. LEXAPRO [Concomitant]
  9. LIPITOR [Concomitant]
  10. DIAZEPAM [Concomitant]
  11. MOBIC [Concomitant]

REACTIONS (12)
  - BLISTER [None]
  - CARDIAC FAILURE CONGESTIVE [None]
  - CARDIAC FLUTTER [None]
  - DEHYDRATION [None]
  - DRUG INEFFECTIVE [None]
  - HEART RATE DECREASED [None]
  - PLEURAL EFFUSION [None]
  - PRURITUS [None]
  - RASH ERYTHEMATOUS [None]
  - SCAR [None]
  - SKIN BURNING SENSATION [None]
  - WEIGHT DECREASED [None]
